FAERS Safety Report 7686626-0 (Version None)
Quarter: 2011Q3

REPORT INFORMATION
  Report Type: 
  Country: None (occurrence: None)
  Receive Date: 20110816
  Receipt Date: 20110816
  Transmission Date: 20111222
  Serious: No
  Sender: FDA-Public Use
  Company Number: None

PATIENT
  Age: 43 Year
  Sex: Male
  Weight: 56.699 kg

DRUGS (1)
  1. ORAVIG [Suspect]
     Indication: ORAL CANDIDIASIS
     Dosage: 50MG
     Route: 002
     Dates: start: 20101210, end: 20101211

REACTIONS (1)
  - MUCOSAL ULCERATION [None]
